FAERS Safety Report 10884290 (Version 2)
Quarter: 2015Q1

REPORT INFORMATION
  Report Type: Spontaneous
  Country: IT (occurrence: None)
  Receive Date: 20150227
  Receipt Date: 20150311
  Transmission Date: 20150721
  Serious: Yes (Other)
  Sender: FDA-Public Use
  Company Number: COL_19204_2015

PATIENT
  Sex: Female

DRUGS (1)
  1. MERIDOL MOUTHWASH CHLORHEXIDINE 0.2% (CHLORHEXIDINE GLUCONATE 2 MG/ML OROMUCOSAL SOLUTION) [Suspect]
     Active Substance: CHLORHEXIDINE GLUCONATE
     Indication: SURGERY
     Dosage: X 60 SECONDS FOR 5 DAYS
     Route: 048
     Dates: start: 201502, end: 201502

REACTIONS (2)
  - Soft tissue necrosis [None]
  - Chemical burn of gastrointestinal tract [None]

NARRATIVE: CASE EVENT DATE: 20150210
